FAERS Safety Report 4765211-4 (Version None)
Quarter: 2005Q3

REPORT INFORMATION
  Report Type: 
  Country: None (occurrence: None)
  Receive Date: 20050906
  Receipt Date: 20050823
  Transmission Date: 20060218
  Serious: Yes (Disabling, Other)
  Sender: FDA-Public Use
  Company Number: 2005119926

PATIENT
  Age: 44 Year
  Sex: Male
  Weight: 73.4827 kg

DRUGS (3)
  1. DEPO-MEDROL [Suspect]
     Indication: INTERVERTEBRAL DISC PROTRUSION
     Dosage: 80 MG (40 MG, 1 IN 1 D), INTRA-TRACHEAL
     Route: 039
     Dates: start: 19970901, end: 19970901
  2. TEGRETOL [Suspect]
     Indication: MUSCLE SPASTICITY
  3. DARVOCET-N 100 [Concomitant]

REACTIONS (15)
  - ARACHNOIDITIS [None]
  - FAECAL INCONTINENCE [None]
  - FALL [None]
  - GAIT DISTURBANCE [None]
  - IATROGENIC INJURY [None]
  - IMPAIRED WORK ABILITY [None]
  - JAUNDICE [None]
  - MONOPLEGIA [None]
  - MUSCLE SPASTICITY [None]
  - PAIN IN EXTREMITY [None]
  - SPINAL CORD HAEMORRHAGE [None]
  - SPINAL CORD INJURY [None]
  - SWELLING [None]
  - URINARY INCONTINENCE [None]
  - WEIGHT DECREASED [None]
